FAERS Safety Report 7490468-9 (Version None)
Quarter: 2011Q2

REPORT INFORMATION
  Report Type: 
  Country: None (occurrence: None)
  Receive Date: 20110517
  Receipt Date: 20110517
  Transmission Date: 20111010
  Serious: Yes (Death)
  Sender: FDA-Public Use
  Company Number: None

PATIENT
  Age: 44 Year
  Sex: Male

DRUGS (14)
  1. LEVOFLOXACIN [Suspect]
     Indication: VIRAEMIA
     Dosage: 500 MG QOD PO
     Route: 048
     Dates: start: 20101214, end: 20110114
  2. LEVOFLOXACIN [Suspect]
     Indication: BK VIRUS INFECTION
     Dosage: 500 MG QOD PO
     Route: 048
     Dates: start: 20101214, end: 20110114
  3. ACETOMENOPHEN [Concomitant]
  4. VALGANCICLOVIR HCL [Concomitant]
  5. SODIUM BICARBONATE [Concomitant]
  6. HYDROMORPHONE HCL [Concomitant]
  7. METOPROLOL TARTRATE [Concomitant]
  8. NIFEDIPINE [Concomitant]
  9. INSULIN GLARGINE [Concomitant]
  10. LEFLUNOMIDE [Concomitant]
  11. MULTI-VITAMINS [Concomitant]
  12. SIMVASTATIN [Concomitant]
  13. ASPIRIN [Concomitant]
  14. SERTRALINE HYDROCHLORIDE [Concomitant]

REACTIONS (4)
  - CORONARY ARTERY DISEASE [None]
  - MYOCARDIAL INFARCTION [None]
  - DIABETES MELLITUS [None]
  - RENAL DISORDER [None]
